FAERS Safety Report 7412796-5 (Version None)
Quarter: 2011Q2

REPORT INFORMATION
  Report Type: 
  Country: None (occurrence: None)
  Receive Date: 20110413
  Receipt Date: 20110406
  Transmission Date: 20111010
  Serious: Yes (Other)
  Sender: FDA-Public Use
  Company Number: A0922550A

PATIENT

DRUGS (1)
  1. AVODART [Suspect]
     Indication: ALOPECIA
     Route: 065

REACTIONS (5)
  - DRUG INEFFECTIVE [None]
  - LOSS OF LIBIDO [None]
  - MUSCLE ATROPHY [None]
  - ALOPECIA [None]
  - ECZEMA [None]
